FAERS Safety Report 21641994 (Version 1)
Quarter: 2022Q4

REPORT INFORMATION
  Report Type: Spontaneous
  Country: FR (occurrence: FR)
  Receive Date: 20221125
  Receipt Date: 20221125
  Transmission Date: 20230112
  Serious: No
  Sender: FDA-Public Use
  Company Number: FR-ALKEM LABORATORIES LIMITED-FR-ALKEM-2022-00197

PATIENT
  Age: 45 Year
  Sex: Female

DRUGS (2)
  1. OLANZAPINE [Suspect]
     Active Substance: OLANZAPINE
     Indication: Encephalitis
     Dosage: UNK
     Route: 065
  2. LEVOMEPROMAZINE [Suspect]
     Active Substance: LEVOMEPROMAZINE
     Indication: Encephalitis
     Dosage: UNK
     Route: 065

REACTIONS (4)
  - Hyperthermia [Unknown]
  - Confusional state [Unknown]
  - Headache [Unknown]
  - Blood creatine phosphokinase [Unknown]
